FAERS Safety Report 5705621-1 (Version None)
Quarter: 2008Q2

REPORT INFORMATION
  Report Type: 
  Country: None (occurrence: None)
  Receive Date: 20080411
  Receipt Date: 20080327
  Transmission Date: 20081010
  Serious: No
  Sender: FDA-Public Use
  Company Number: IDA-00026

PATIENT
  Age: 35 Year
  Sex: Female

DRUGS (3)
  1. PROPRANOLOL [Suspect]
     Dosage: TOTAL DAILY DOSE: 120 MG PO, FORMULATION: TABL
     Route: 048
     Dates: start: 20040610
  2. VALIUM [Suspect]
     Dates: start: 20040115
  3. RELAXIBYS: (PARACETAMOL/CARISOPRODOL) [Suspect]
     Dosage: DOSE TEXT: 200/500MG FORMULATION: TABL
     Dates: start: 20040610

REACTIONS (2)
  - DRUG ABUSE [None]
  - DRUG DEPENDENCE [None]
